FAERS Safety Report 17900244 (Version 3)
Quarter: 2020Q2

REPORT INFORMATION
  Report Type: Spontaneous
  Country: US (occurrence: US)
  Receive Date: 20200616
  Receipt Date: 20200630
  Transmission Date: 20200714
  Serious: Yes (Other)
  Sender: FDA-Public Use
  Company Number: US-PFIZER INC-2020231981

PATIENT
  Age: 33 Year
  Sex: Female
  Weight: 141.07 kg

DRUGS (2)
  1. LYRICA [Suspect]
     Active Substance: PREGABALIN
     Dosage: 75 MG, (75MG IN THE MORNING, 75MG OR 150MG DURING THE DAY, AND 150MG AT NIGHT)
     Route: 048
  2. LYRICA [Suspect]
     Active Substance: PREGABALIN
     Indication: FIBROMYALGIA
     Dosage: 150 MG, 3X/DAY
     Route: 048

REACTIONS (4)
  - Intentional product use issue [Unknown]
  - Movement disorder [Unknown]
  - Drug dependence [Unknown]
  - Pain [Unknown]
